FAERS Safety Report 22204691 (Version 2)
Quarter: 2023Q2

REPORT INFORMATION
  Report Type: Report from Study
  Country: PL (occurrence: PL)
  Receive Date: 20230413
  Receipt Date: 20230426
  Transmission Date: 20230722
  Serious: Yes (Hospitalization)
  Sender: FDA-Public Use
  Company Number: PL-TAKEDA-2023TUS035275

PATIENT
  Sex: Male

DRUGS (41)
  1. IDURSULFASE [Suspect]
     Active Substance: IDURSULFASE
     Indication: Mucopolysaccharidosis II
     Dosage: 0.5 MILLIGRAM/KILOGRAM, 1/WEEK
     Route: 042
     Dates: start: 20221031
  2. AMOXICILLIN\CLAVULANIC ACID [Concomitant]
     Active Substance: AMOXICILLIN\CLAVULANIC ACID
     Indication: Bronchitis
     Dosage: UNK
     Route: 065
     Dates: start: 20210704, end: 20210715
  3. HYDROCORTISONE [Concomitant]
     Active Substance: HYDROCORTISONE
     Indication: Bronchitis
     Dosage: UNK
     Route: 065
     Dates: start: 20210704, end: 20210715
  4. HYDROCORTISONE [Concomitant]
     Active Substance: HYDROCORTISONE
     Indication: Pneumonia
     Dosage: UNK
     Route: 042
     Dates: start: 20221008, end: 20221020
  5. HYDROCORTISONE [Concomitant]
     Active Substance: HYDROCORTISONE
     Indication: Dermatitis allergic
     Dosage: UNK
     Route: 065
     Dates: start: 20221022, end: 20221026
  6. BUDEZONID FERRING [Concomitant]
     Indication: Bronchitis
     Dosage: UNK
     Route: 065
     Dates: start: 20210704, end: 20210715
  7. BUDEZONID FERRING [Concomitant]
     Indication: Pneumonia
     Dosage: UNK
     Route: 055
     Dates: start: 20221008, end: 20221020
  8. BUDEZONID FERRING [Concomitant]
     Indication: Respiratory tract infection
     Dosage: UNK
     Route: 055
     Dates: start: 20221114, end: 20221118
  9. BUDEZONID FERRING [Concomitant]
     Dosage: UNK
     Route: 055
     Dates: start: 20221121, end: 20221121
  10. BUDEZONID FERRING [Concomitant]
     Dosage: UNK
     Route: 055
     Dates: start: 20221205, end: 20221205
  11. EPINEPHRINE [Concomitant]
     Active Substance: EPINEPHRINE
     Indication: Bronchitis
     Dosage: UNK
     Route: 055
     Dates: start: 20210704, end: 20210715
  12. EPINEPHRINE [Concomitant]
     Active Substance: EPINEPHRINE
     Indication: Respiratory tract infection
     Dosage: UNK
     Route: 055
     Dates: start: 20221114, end: 20221114
  13. AMBROXOL HYDROCHLORIDE [Concomitant]
     Active Substance: AMBROXOL HYDROCHLORIDE
     Indication: Bronchitis
     Dosage: UNK
     Route: 048
     Dates: start: 20210704, end: 20210715
  14. MEBENDAZOLE [Concomitant]
     Active Substance: MEBENDAZOLE
     Dosage: UNK
     Route: 048
     Dates: start: 20210704, end: 20210715
  15. MEBENDAZOLE [Concomitant]
     Active Substance: MEBENDAZOLE
     Dosage: UNK
     Route: 048
     Dates: start: 20221008, end: 20221020
  16. LACTOBACILLUS ACIDOPHILUS [Concomitant]
     Active Substance: LACTOBACILLUS ACIDOPHILUS
     Dosage: UNK
     Route: 048
     Dates: start: 20210704, end: 20210715
  17. LACTOBACILLUS ACIDOPHILUS [Concomitant]
     Active Substance: LACTOBACILLUS ACIDOPHILUS
     Dosage: UNK
     Route: 048
     Dates: start: 20221008, end: 20221020
  18. FENOTEROL HYDROBROMIDE\IPRATROPIUM BROMIDE [Concomitant]
     Active Substance: FENOTEROL HYDROBROMIDE\IPRATROPIUM BROMIDE
     Indication: Bronchitis
     Dosage: UNK
     Route: 065
     Dates: start: 20210704, end: 20210715
  19. FENOTEROL HYDROBROMIDE\IPRATROPIUM BROMIDE [Concomitant]
     Active Substance: FENOTEROL HYDROBROMIDE\IPRATROPIUM BROMIDE
     Indication: Pneumonia
     Dosage: UNK
     Route: 055
     Dates: start: 20221008, end: 20221020
  20. SPIRONOLACTONE [Concomitant]
     Active Substance: SPIRONOLACTONE
     Dosage: UNK
     Route: 065
     Dates: start: 20210726
  21. ZESTRIL [Concomitant]
     Active Substance: LISINOPRIL
     Dosage: UNK
     Route: 065
     Dates: start: 20220704, end: 20220705
  22. METOPROLOL [Concomitant]
     Active Substance: METOPROLOL
     Indication: Sinus tachycardia
     Dosage: UNK
     Route: 065
     Dates: start: 20220705, end: 20221018
  23. MAGNESIUM [Concomitant]
     Active Substance: MAGNESIUM
     Dosage: UNK
     Route: 065
     Dates: start: 20220705
  24. MOMETASONE [Concomitant]
     Active Substance: MOMETASONE
     Indication: Ear infection
     Dosage: UNK
     Route: 045
     Dates: start: 20220708, end: 20220729
  25. VITAMIN D [Concomitant]
     Active Substance: VITAMIN D NOS
     Indication: Vitamin D decreased
     Dosage: UNK
     Route: 048
     Dates: start: 20220713
  26. CEFUROXIMUM [Concomitant]
     Indication: Pneumonia
     Dosage: UNK
     Route: 042
     Dates: start: 20221008, end: 20221020
  27. ACETAMINOPHEN [Concomitant]
     Active Substance: ACETAMINOPHEN
     Indication: Pneumonia
     Dosage: UNK
     Route: 042
     Dates: start: 20221008, end: 20221020
  28. ACETAMINOPHEN [Concomitant]
     Active Substance: ACETAMINOPHEN
     Indication: Anaphylactic reaction
     Dosage: UNK
     Route: 048
     Dates: start: 20230109, end: 20230109
  29. ACETAMINOPHEN [Concomitant]
     Active Substance: ACETAMINOPHEN
     Dosage: UNK
     Route: 048
     Dates: start: 20230116
  30. DIPYRONE [Concomitant]
     Active Substance: DIPYRONE
     Indication: Pneumonia
     Dosage: UNK
     Route: 042
     Dates: start: 20221008, end: 20221020
  31. FUROSEMIDE [Concomitant]
     Active Substance: FUROSEMIDE
     Dosage: UNK
     Route: 042
     Dates: start: 20221008, end: 20221020
  32. AMBROXOLI HYDROCHLORIDUM [Concomitant]
     Indication: Pneumonia
     Dosage: UNK
     Route: 042
     Dates: start: 20221008, end: 20221020
  33. CETIRIZINE [Concomitant]
     Active Substance: CETIRIZINE HYDROCHLORIDE
     Indication: Dermatitis allergic
     Dosage: UNK
     Route: 048
     Dates: start: 20221008, end: 20221020
  34. CETIRIZINE [Concomitant]
     Active Substance: CETIRIZINE HYDROCHLORIDE
     Dosage: UNK
     Route: 065
     Dates: start: 20221022, end: 202210
  35. PROPRANOLOL [Concomitant]
     Active Substance: PROPRANOLOL HYDROCHLORIDE
     Indication: Sinus tachycardia
     Dosage: UNK
     Route: 048
     Dates: start: 20221019
  36. Metmin [Concomitant]
     Indication: Respiratory tract infection
     Dosage: UNK
     Route: 045
     Dates: start: 20221114, end: 20221205
  37. CLEMASTINE [Concomitant]
     Active Substance: CLEMASTINE
     Indication: Respiratory tract infection
     Dosage: UNK
     Route: 065
     Dates: start: 20221114, end: 20221117
  38. CLEMASTINE [Concomitant]
     Active Substance: CLEMASTINE
     Dosage: UNK
     Route: 048
     Dates: start: 20221114
  39. ERDOSTEINE [Concomitant]
     Active Substance: ERDOSTEINE
     Indication: Respiratory tract infection
     Dosage: UNK
     Route: 048
     Dates: start: 20021221, end: 20221127
  40. HYDROCORTISONE [Concomitant]
     Active Substance: HYDROCORTISONE
     Indication: Anaphylactic reaction
     Dosage: UNK
     Route: 042
     Dates: start: 20230109, end: 20230109
  41. HYDROCORTISONE [Concomitant]
     Active Substance: HYDROCORTISONE
     Dosage: UNK
     Route: 042
     Dates: start: 20230116

REACTIONS (1)
  - Investigation [Unknown]
